FAERS Safety Report 7496752-7 (Version None)
Quarter: 2011Q2

REPORT INFORMATION
  Report Type: 
  Country: None (occurrence: None)
  Receive Date: 20110523
  Receipt Date: 20110516
  Transmission Date: 20111010
  Serious: Yes (Other)
  Sender: FDA-Public Use
  Company Number: B0684584A

PATIENT
  Sex: Female

DRUGS (3)
  1. REYATAZ [Concomitant]
     Indication: HIV INFECTION
     Route: 065
     Dates: start: 20080207
  2. ABACAVIR SULFATE AND LAMIVUDINE [Suspect]
     Indication: HIV INFECTION
     Route: 065
     Dates: start: 20080207
  3. NORVIR [Concomitant]
     Route: 065
     Dates: start: 20050701

REACTIONS (3)
  - COLLATERAL CIRCULATION [None]
  - VARICES OESOPHAGEAL [None]
  - PORTAL HYPERTENSION [None]
